FAERS Safety Report 5200080-X (Version None)
Quarter: 2007Q1

REPORT INFORMATION
  Report Type: 
  Country: None (occurrence: None)
  Receive Date: 20070105
  Receipt Date: 20070102
  Transmission Date: 20070707
  Serious: Yes (Other)
  Sender: FDA-Public Use
  Company Number: US-GLAXOSMITHKLINE-A0633246A

PATIENT
  Age: 44 Year
  Sex: Male

DRUGS (2)
  1. LAMICTAL [Suspect]
     Indication: BIPOLAR DISORDER
     Dosage: 400MG UNKNOWN
     Route: 048
     Dates: start: 20040101, end: 20061101
  2. LITHIUM CARBONATE [Suspect]
     Dosage: 900MGD UNKNOWN
     Route: 048
     Dates: start: 20060101

REACTIONS (4)
  - CELLULITIS STAPHYLOCOCCAL [None]
  - RASH [None]
  - STEVENS-JOHNSON SYNDROME [None]
  - URTICARIA [None]
